FAERS Safety Report 21333105 (Version 7)
Quarter: 2023Q1

REPORT INFORMATION
  Report Type: Report from Study
  Country: IN (occurrence: IN)
  Receive Date: 20220914
  Receipt Date: 20230322
  Transmission Date: 20230418
  Serious: Yes (Hospitalization)
  Sender: FDA-Public Use
  Company Number: IN-GSK-IN2022120752

PATIENT

DRUGS (21)
  1. BELANTAMAB MAFODOTIN [Suspect]
     Active Substance: BELANTAMAB MAFODOTIN
     Indication: Plasma cell myeloma
     Dosage: 1.9 MG/KG, Q6W
     Route: 042
     Dates: start: 20220809
  2. CALDISON [Concomitant]
     Indication: Supplementation therapy
     Dosage: 507.5 MG, SINGLE
     Route: 048
     Dates: start: 20220809, end: 20220815
  3. DOMPERIDONE + RABEPRAZOLE [Concomitant]
     Indication: Gastrooesophageal reflux disease
     Dosage: 50 MG, SINGLE
     Route: 048
     Dates: start: 20220809, end: 20220815
  4. DOMPERIDONE + RABEPRAZOLE [Concomitant]
     Dosage: 50 MG, BID
     Route: 048
     Dates: start: 20220818, end: 20221201
  5. OPTINEURON [Concomitant]
     Indication: Malnutrition
     Dosage: 356 MG, SINGLE
     Route: 042
     Dates: start: 20220815, end: 20220818
  6. CEFOPERAZONE SODIUM\SULBACTAM SODIUM [Concomitant]
     Active Substance: CEFOPERAZONE SODIUM\SULBACTAM SODIUM
     Indication: Bacterial infection
     Dosage: 1500 MG, BID
     Route: 042
     Dates: start: 20220815, end: 20220818
  7. PANTOPRAZOLE [Concomitant]
     Active Substance: PANTOPRAZOLE
     Indication: Gastrooesophageal reflux disease
     Dosage: 40 MG, BID
     Route: 048
     Dates: start: 20220815, end: 20220818
  8. ONDANSETRON [Concomitant]
     Active Substance: ONDANSETRON
     Indication: Prophylaxis of nausea and vomiting
     Dosage: 4 MG, BID
     Route: 048
     Dates: start: 20220815, end: 20220818
  9. DEXAMETHASONE [Concomitant]
     Active Substance: DEXAMETHASONE
     Indication: Prophylaxis
     Dosage: 4 MG, SINGLE
     Route: 042
     Dates: start: 20220815, end: 20220816
  10. METFORMIN [Concomitant]
     Active Substance: METFORMIN HYDROCHLORIDE
     Indication: Diabetes mellitus
     Dosage: 500 MG, BID
     Route: 048
     Dates: start: 20220816, end: 20220818
  11. HUMAN RED BLOOD CELL [Concomitant]
     Active Substance: HUMAN RED BLOOD CELL
     Indication: Anaemia
     Dosage: 1 DF, SINGLE
     Route: 042
     Dates: start: 20220817, end: 20220817
  12. ZOLEDRONIC ACID [Concomitant]
     Active Substance: ZOLEDRONIC ACID
     Indication: Osteoporosis
     Dosage: 4 MG, SINGLE
     Route: 042
     Dates: start: 20220817, end: 20220818
  13. ACYCLOVIR [Concomitant]
     Active Substance: ACYCLOVIR
     Indication: Infection prophylaxis
     Dosage: 400 MG, SINGLE
     Route: 048
     Dates: start: 20220809, end: 20220815
  14. ACYCLOVIR [Concomitant]
     Active Substance: ACYCLOVIR
     Dosage: 400 MG, SINGLE
     Route: 048
     Dates: start: 20220818, end: 20221201
  15. CEFIXIME [Concomitant]
     Active Substance: CEFIXIME
     Indication: Bacterial infection
     Dosage: 200 MG, BID
     Route: 048
     Dates: start: 20220818, end: 20220821
  16. ACETAMINOPHEN [Concomitant]
     Active Substance: ACETAMINOPHEN
     Indication: Pyrexia
     Dosage: 2 ML (FREQUENCY = EVERY 6 HOURS)
     Route: 042
     Dates: start: 20220815, end: 20220815
  17. ACETAMINOPHEN [Concomitant]
     Active Substance: ACETAMINOPHEN
     Dosage: 2 ML, SINGLE
     Route: 042
     Dates: start: 20220816, end: 20220817
  18. LACTULOSE [Concomitant]
     Active Substance: LACTULOSE
     Indication: Constipation
     Dosage: 10 G, Q4D
     Route: 048
     Dates: start: 20220809, end: 20220815
  19. LACTULOSE [Concomitant]
     Active Substance: LACTULOSE
     Dosage: 10 G, Q4D
     Route: 048
     Dates: start: 20220818, end: 20221201
  20. CHLORHEXIDINE GLUCONATE [Concomitant]
     Active Substance: CHLORHEXIDINE GLUCONATE
     Indication: Gingivitis
     Dosage: 0.2 DF, FREQUENCY = FOUR TIMES DAILY
     Route: 048
     Dates: start: 20220809, end: 20220815
  21. CHLORHEXIDINE GLUCONATE [Concomitant]
     Active Substance: CHLORHEXIDINE GLUCONATE
     Dosage: 0.2 DF, FREQUENCY = FOUR TIMES DAILY
     Route: 048
     Dates: start: 20220818, end: 20221201

REACTIONS (1)
  - Lower respiratory tract infection [Recovered/Resolved]

NARRATIVE: CASE EVENT DATE: 20220810
